FAERS Safety Report 7606588-1 (Version None)
Quarter: 2011Q3

REPORT INFORMATION
  Report Type: 
  Country: None (occurrence: None)
  Receive Date: 20110713
  Receipt Date: 20110704
  Transmission Date: 20111222
  Serious: Yes (Death, Other)
  Sender: FDA-Public Use
  Company Number: PHHY2011NL50040

PATIENT
  Sex: Male

DRUGS (3)
  1. ZOMETA [Suspect]
     Dates: start: 20110607
  2. ZOMETA [Suspect]
     Dates: start: 20110509
  3. ZOMETA [Suspect]
     Indication: PROSTATE CANCER METASTATIC
     Dates: start: 20100406

REACTIONS (5)
  - BONE PAIN [None]
  - HAEMOGLOBIN DECREASED [None]
  - NEOPLASM PROGRESSION [None]
  - NEOPLASM MALIGNANT [None]
  - GENERAL PHYSICAL HEALTH DETERIORATION [None]
